FAERS Safety Report 4611975-X (Version None)
Quarter: 2005Q2

REPORT INFORMATION
  Report Type: 
  Country: None (occurrence: None)
  Receive Date: 20050308
  Receipt Date: 20041220
  Transmission Date: 20051028
  Serious: Yes (Other)
  Sender: FDA-Public Use
  Company Number: 2004UW25866

PATIENT
  Age: 60 Year
  Sex: Female
  Weight: 79.378 kg

DRUGS (7)
  1. CRESTOR [Suspect]
     Indication: HYPERCHOLESTEROLAEMIA
     Dosage: 10 MG PO
     Route: 048
     Dates: start: 20041201
  2. SINGULAIR [Concomitant]
  3. ALBUTEROL [Concomitant]
  4. SEREVENT [Concomitant]
  5. MULTI-VITAMINS [Concomitant]
  6. VIT C TAB [Concomitant]
  7. VITAMIN E [Concomitant]

REACTIONS (2)
  - ARTHRALGIA [None]
  - DIFFICULTY IN WALKING [None]
